FAERS Safety Report 5893799-9 (Version None)
Quarter: 2008Q3

REPORT INFORMATION
  Report Type: 
  Country: None (occurrence: None)
  Receive Date: 20080923
  Receipt Date: 20080911
  Transmission Date: 20090109
  Serious: Yes (Other)
  Sender: FDA-Public Use
  Company Number: US-ELI_LILLY_AND_COMPANY-US200808004510

PATIENT
  Sex: Female

DRUGS (8)
  1. BYETTA [Suspect]
     Indication: TYPE 2 DIABETES MELLITUS
     Dosage: 5 UG, 2/D
     Route: 058
  2. BYETTA [Suspect]
     Dosage: 10 UG, 2/D
     Route: 058
  3. NEXIUM [Concomitant]
  4. ATACAND [Concomitant]
  5. TOPROL-XL [Concomitant]
  6. ALLEGRA [Concomitant]
  7. METFORMIN HCL [Concomitant]
  8. NOVOLOG [Concomitant]

REACTIONS (3)
  - HEPATIC CIRRHOSIS [None]
  - HEPATIC STEATOSIS [None]
  - SPLENOMEGALY [None]
